FAERS Safety Report 10743456 (Version 2)
Quarter: 2015Q2

REPORT INFORMATION
  Report Type: Spontaneous
  Country: IT (occurrence: IT)
  Receive Date: 20150128
  Receipt Date: 20150428
  Transmission Date: 20150821
  Serious: Yes (Other)
  Sender: FDA-Public Use
  Company Number: IT-ROCHE-1526250

PATIENT
  Age: 70 Year
  Sex: Female

DRUGS (3)
  1. CARBOPLATINO [Concomitant]
     Active Substance: CARBOPLATIN
     Indication: OVARIAN CANCER
     Dosage: 450 MG/45 ML BOTTLE 45 ML
     Route: 042
     Dates: start: 20141107, end: 20141223
  2. PACLITAXEL. [Concomitant]
     Active Substance: PACLITAXEL
     Indication: OVARIAN CANCER
     Dosage: 6 MG/ML 1 GLASS VIAL OF 100 MG/16.7 ML
     Route: 042
     Dates: start: 20141107, end: 20141223
  3. AVASTIN [Suspect]
     Active Substance: BEVACIZUMAB
     Indication: OVARIAN CANCER
     Dosage: 1 VIAL OF 400 MG
     Route: 042
     Dates: start: 20141128, end: 20150113

REACTIONS (3)
  - Dyspnoea [Recovered/Resolved]
  - Chills [Recovered/Resolved]
  - Erythema [Recovered/Resolved]

NARRATIVE: CASE EVENT DATE: 20150113
